FAERS Safety Report 24322929 (Version 3)
Quarter: 2024Q4

REPORT INFORMATION
  Report Type: Spontaneous
  Country: BR (occurrence: BR)
  Receive Date: 20240916
  Receipt Date: 20241012
  Transmission Date: 20250114
  Serious: No
  Sender: ROCHE
  Company Number: BR-002147023-NVSC2024BR183039

PATIENT
  Sex: Male

DRUGS (6)
  1. XOLAIR [Suspect]
     Active Substance: OMALIZUMAB
     Indication: Chronic spontaneous urticaria
     Dosage: 150MG (2 UNITS) NOWADAYS  EVERY 15  DAYS
     Route: 065
     Dates: start: 20240724
  2. XOLAIR [Suspect]
     Active Substance: OMALIZUMAB
     Indication: Urticaria
  3. MAXIDEX [Suspect]
     Active Substance: DEXAMETHASONE
     Indication: Product used for unknown indication
     Dosage: 1 MG (1 DROP PER  DAY)
     Route: 065
  4. ALEGRA [Concomitant]
     Indication: Product used for unknown indication
     Dosage: UNK
     Route: 065
  5. BILASTINE [Concomitant]
     Active Substance: BILASTINE
     Indication: Product used for unknown indication
     Dosage: UNK
     Route: 065
  6. LEVOCETIRIZINE DIHYDROCHLORIDE [Concomitant]
     Active Substance: LEVOCETIRIZINE DIHYDROCHLORIDE
     Indication: Product used for unknown indication
     Dosage: UNK
     Route: 065

REACTIONS (5)
  - Eye inflammation [Not Recovered/Not Resolved]
  - Urticaria [Not Recovered/Not Resolved]
  - Eye infection [Not Recovered/Not Resolved]
  - Ocular discomfort [Unknown]
  - Rheumatic disorder [Unknown]
